FAERS Safety Report 4863810-2 (Version None)
Quarter: 2005Q4

REPORT INFORMATION
  Report Type: 
  Country: None (occurrence: None)
  Receive Date: 20051222
  Receipt Date: 20050914
  Transmission Date: 20060501
  Serious: No
  Sender: FDA-Public Use
  Company Number: US-GLAXOSMITHKLINE-A0574252A

PATIENT
  Age: 81 Year
  Sex: Female

DRUGS (4)
  1. FLONASE [Suspect]
     Indication: ASTHMA
     Route: 045
     Dates: start: 20030101, end: 20041201
  2. ADVAIR DISKUS 250/50 [Concomitant]
  3. THEOPHYLLINE [Concomitant]
  4. NEBULIZER [Concomitant]

REACTIONS (1)
  - EPISTAXIS [None]
